FAERS Safety Report 7375164-0 (Version None)
Quarter: 2011Q1

REPORT INFORMATION
  Report Type: 
  Country: None (occurrence: None)
  Receive Date: 20110325
  Receipt Date: 20110323
  Transmission Date: 20110831
  Serious: Yes (Hospitalization, Other)
  Sender: FDA-Public Use
  Company Number: JP-PFIZER INC-2011043680

PATIENT
  Age: 67 Year
  Sex: Male

DRUGS (14)
  1. AZULFIDINE [Suspect]
     Indication: RHEUMATOID ARTHRITIS
     Dosage: 500 MG, 2X/DAY
     Route: 048
     Dates: start: 20060501
  2. ADALAT [Concomitant]
     Indication: HYPERTENSION
     Dosage: 20 MG, 2X/DAY
     Route: 048
     Dates: start: 19980101
  3. OLMETEC [Concomitant]
     Dosage: 20 MG, 1X/DAY
     Route: 048
  4. FLUITRAN [Concomitant]
     Indication: HYPERTENSION
     Dosage: 2 MG, 1X/DAY
     Route: 048
     Dates: start: 19980101
  5. GASTER [Concomitant]
     Indication: GASTRITIS
     Dosage: 20 MG, 2X/DAY
     Dates: start: 20090501
  6. ENBREL [Suspect]
     Indication: RHEUMATOID ARTHRITIS
     Dosage: 25 MG, 2X/WEEK (0.5ML (TUESDAY AND FRIDAY))
     Route: 058
     Dates: start: 20100611, end: 20101104
  7. ENBREL [Suspect]
     Dosage: 25 MG, 3X/2WEEKS
     Route: 058
     Dates: start: 20101105, end: 20110120
  8. RHEUMATREX [Suspect]
     Indication: RHEUMATOID ARTHRITIS
     Dosage: 6 MG, WEEKLY
     Route: 048
     Dates: start: 20090601, end: 20110204
  9. MAINTATE [Concomitant]
     Indication: HYPERTENSION
     Dosage: 5 MG, 1X/DAY
     Route: 048
     Dates: start: 19980101
  10. URSO 250 [Concomitant]
     Indication: CHOLELITHIASIS
     Dosage: 100 MG, 2X/DAY
     Route: 048
     Dates: start: 20060601
  11. ENBREL [Suspect]
     Dosage: 50 MG, WEEKLY
     Route: 058
     Dates: start: 20110121
  12. PREDONINE [Concomitant]
     Indication: RHEUMATOID ARTHRITIS
     Dosage: 2.5 MG, 2X/DAY
     Route: 048
     Dates: start: 20060501
  13. ETODOLAC [Concomitant]
     Indication: RHEUMATOID ARTHRITIS
     Dosage: 200 MG, 2X/DAY
     Route: 048
     Dates: start: 20060501
  14. MAINTATE [Concomitant]
     Indication: VENTRICULAR EXTRASYSTOLES

REACTIONS (4)
  - RHEUMATOID ARTHRITIS [None]
  - ENTEROCOLITIS HAEMORRHAGIC [None]
  - HAEMOGLOBIN DECREASED [None]
  - JOINT ARTHROPLASTY [None]
